FAERS Safety Report 17127483 (Version 2)
Quarter: 2019Q4

REPORT INFORMATION
  Report Type: Spontaneous
  Country: JP (occurrence: JP)
  Receive Date: 20191209
  Receipt Date: 20191227
  Transmission Date: 20200122
  Serious: Yes (Hospitalization)
  Sender: FDA-Public Use
  Company Number: JP-GLAXOSMITHKLINE-JP2019221173

PATIENT
  Age: 72 Year
  Sex: Female

DRUGS (1)
  1. REQUIP [Suspect]
     Active Substance: ROPINIROLE HYDROCHLORIDE
     Dosage: 8 MG, BID (MORNING AND EVENING)
     Route: 048

REACTIONS (2)
  - Ill-defined disorder [Unknown]
  - Inappropriate schedule of product administration [Unknown]
